FAERS Safety Report 10011527 (Version 2)
Quarter: 2014Q2

REPORT INFORMATION
  Report Type: Spontaneous
  Country: US (occurrence: US)
  Receive Date: 20140314
  Receipt Date: 20140519
  Transmission Date: 20141212
  Serious: Yes (Other)
  Sender: FDA-Public Use
  Company Number: US-SA-2014SA031097

PATIENT
  Age: 54 Year
  Sex: Female

DRUGS (4)
  1. KYNAMRO [Suspect]
     Indication: TYPE IIA HYPERLIPIDAEMIA
     Route: 058
     Dates: start: 20131123
  2. AMLODIPINE/BENAZEPRIL [Concomitant]
     Indication: HYPERTENSION
     Dosage: DOSE: 5-10
     Dates: start: 2013
  3. OMEPRAZOLE [Concomitant]
     Indication: GASTROOESOPHAGEAL REFLUX DISEASE
     Dates: start: 2013
  4. VITAMIN D [Concomitant]
     Indication: VITAMIN D DEFICIENCY
     Dosage: DOSE:5000 UNIT(S)
     Dates: start: 2013

REACTIONS (1)
  - Hepatic enzyme increased [Recovered/Resolved]
